FAERS Safety Report 17969632 (Version 1)
Quarter: 2020Q3

REPORT INFORMATION
  Report Type: Spontaneous
  Country: DE (occurrence: DE)
  Receive Date: 20200701
  Receipt Date: 20200701
  Transmission Date: 20201103
  Serious: Yes (Hospitalization, Other)
  Sender: FDA-Public Use
  Company Number: DE-MYLANLABS-2020M1059320

PATIENT
  Age: 1 Day
  Sex: Male
  Weight: 3.29 kg

DRUGS (4)
  1. OXYCODONE [Suspect]
     Active Substance: OXYCODONE
     Indication: PAIN
     Dosage: 180 [MG/D ]/ VARYING DOSAGE: 4X20MG/D TO 3X60MG/D,
     Route: 064
     Dates: start: 20190528, end: 20200211
  2. AMITRIPTYLINE [Suspect]
     Active Substance: AMITRIPTYLINE
     Indication: PAIN
     Dosage: 25 [MG/D ]
     Route: 064
     Dates: start: 20190528, end: 20200211
  3. DRONABINOL. [Suspect]
     Active Substance: DRONABINOL
     Indication: PAIN
     Dosage: 2X13 DROPS, DOSAGE REDUCTION TO 5/D
     Route: 064
     Dates: start: 20190528, end: 20200211
  4. ZOPICLONE [Concomitant]
     Active Substance: ZOPICLONE
     Indication: SLEEP DISORDER
     Dosage: 7.5 [MG/D ]/ AT LEAST UNTIL 6TH MONTHS, DETAILS UNKNOWN
     Route: 064

REACTIONS (8)
  - Neonatal infection [Recovered/Resolved]
  - Foetal exposure during pregnancy [Recovered/Resolved]
  - Pneumothorax [Recovered/Resolved]
  - Hypotonia neonatal [Recovered/Resolved]
  - Respiratory disorder neonatal [Recovered/Resolved]
  - Drug withdrawal syndrome neonatal [Recovered/Resolved]
  - Dyspnoea [Recovered/Resolved]
  - Tachypnoea [Recovered/Resolved]

NARRATIVE: CASE EVENT DATE: 20200211
